FAERS Safety Report 14070152 (Version 1)
Quarter: 2017Q4

REPORT INFORMATION
  Report Type: Report from Study
  Country: US (occurrence: US)
  Receive Date: 20171010
  Receipt Date: 20171010
  Transmission Date: 20180321
  Serious: No
  Sender: FDA-Public Use
  Company Number: PHEH2017US032580

PATIENT
  Age: 62 Year
  Sex: Male

DRUGS (1)
  1. COSENTYX [Suspect]
     Active Substance: SECUKINUMAB
     Indication: PRODUCT USED FOR UNKNOWN INDICATION
     Dosage: 150 MG, QMO
     Route: 058
     Dates: start: 20170810

REACTIONS (6)
  - Malaise [Unknown]
  - Dyspnoea [Unknown]
  - Oral pain [Unknown]
  - Inappropriate schedule of drug administration [Unknown]
  - Chronic obstructive pulmonary disease [Unknown]
  - Stomatitis [Unknown]

NARRATIVE: CASE EVENT DATE: 20170810
